FAERS Safety Report 7219447-3 (Version None)
Quarter: 2011Q1

REPORT INFORMATION
  Report Type: 
  Country: None (occurrence: None)
  Receive Date: 20110111
  Receipt Date: 20101227
  Transmission Date: 20110831
  Serious: Yes (Other)
  Sender: FDA-Public Use
  Company Number: PHHY2009US28534

PATIENT
  Sex: Female

DRUGS (3)
  1. KEPPRA [Concomitant]
     Dates: end: 20101101
  2. TEGRETOL [Suspect]
     Indication: GRAND MAL CONVULSION
     Dates: start: 20090501
  3. INTERFERON BETA-1B [Suspect]
     Indication: MULTIPLE SCLEROSIS
     Dosage: 8 MIU, QOD
     Route: 058
     Dates: start: 20090703, end: 20101108

REACTIONS (4)
  - MULTIPLE SCLEROSIS RELAPSE [None]
  - MUSCULOSKELETAL STIFFNESS [None]
  - GRAND MAL CONVULSION [None]
  - VISUAL IMPAIRMENT [None]
